FAERS Safety Report 23736167 (Version 1)
Quarter: 2024Q2

REPORT INFORMATION
  Report Type: Other
  Country: CN (occurrence: None)
  Receive Date: 20240412
  Receipt Date: 20240412
  Transmission Date: 20240716
  Serious: Yes (Death, Life-Threatening)
  Sender: FDA-Public Use
  Company Number: CN-ROCHE-3541568

PATIENT
  Age: 49 Year
  Sex: Male
  Weight: 66 kg

DRUGS (3)
  1. MABTHERA [Suspect]
     Active Substance: RITUXIMAB
     Indication: Diffuse large B-cell lymphoma
     Route: 041
     Dates: start: 20240227, end: 20240227
  2. COLUMVI [Suspect]
     Active Substance: GLOFITAMAB-GXBM
     Indication: Diffuse large B-cell lymphoma
     Dosage: STRENGTH: 10 MG/VIAL
     Route: 041
     Dates: start: 20240305, end: 20240305
  3. COLUMVI [Suspect]
     Active Substance: GLOFITAMAB-GXBM
     Route: 041
     Dates: start: 20240314, end: 20240314

REACTIONS (2)
  - Respiratory failure [Not Recovered/Not Resolved]
  - Cytokine release syndrome [Fatal]

NARRATIVE: CASE EVENT DATE: 20240306
